FAERS Safety Report 5702704-7 (Version None)
Quarter: 2008Q2

REPORT INFORMATION
  Report Type: 
  Country: None (occurrence: None)
  Receive Date: 20080411
  Receipt Date: 20080404
  Transmission Date: 20081010
  Serious: Yes (Hospitalization)
  Sender: FDA-Public Use
  Company Number: A0719380A

PATIENT
  Age: 48 Year
  Sex: Female

DRUGS (4)
  1. WELLBUTRIN XL [Suspect]
     Indication: DEPRESSION
     Dosage: 300MG TWICE PER DAY
     Route: 048
     Dates: start: 20071001
  2. CARTIA XT [Concomitant]
  3. PREMARIN [Concomitant]
  4. XANAX [Concomitant]

REACTIONS (5)
  - CONFUSIONAL STATE [None]
  - EYE INJURY [None]
  - FALL [None]
  - GRAND MAL CONVULSION [None]
  - LOCAL SWELLING [None]
